FAERS Safety Report 8884630 (Version 2)
Quarter: 2012Q4

REPORT INFORMATION
  Report Type: 
  Country: JP (occurrence: JP)
  Receive Date: 20121104
  Receipt Date: 20121210
  Transmission Date: 20130627
  Serious: Yes (Death, Other)
  Sender: FDA-Public Use
  Company Number: JP-AMGEN-JPNSP2012069710

PATIENT
  Age: 77 Year
  Sex: Male
  Weight: 61 kg

DRUGS (6)
  1. VECTIBIX [Suspect]
     Indication: LARGE INTESTINE CARCINOMA
     Dosage: 366 mg, q2wk
     Route: 041
     Dates: start: 20120329, end: 20120903
  2. VECTIBIX [Suspect]
     Indication: RECTAL CANCER RECURRENT
  3. ELPLAT [Suspect]
     Indication: LARGE INTESTINE CARCINOMA
     Dosage: 142 mg, q2wk
     Route: 041
     Dates: start: 20120329, end: 20120928
  4. ELPLAT [Suspect]
     Indication: RECTAL CANCER RECURRENT
  5. 5-FU [Suspect]
     Indication: RECTAL CANCER RECURRENT
     Dosage: 4000 mg, q2wk
     Route: 041
     Dates: start: 20120329, end: 20120928
  6. LEVOFOLINATE [Concomitant]
     Indication: LARGE INTESTINE CARCINOMA
     Dosage: UNK
     Route: 041
     Dates: start: 20120711

REACTIONS (2)
  - Interstitial lung disease [Fatal]
  - Staphylococcus test positive [None]
